FAERS Safety Report 22150825 (Version 1)
Quarter: 2023Q1

REPORT INFORMATION
  Report Type: Spontaneous
  Country: US (occurrence: US)
  Receive Date: 20230329
  Receipt Date: 20230329
  Transmission Date: 20230417
  Serious: No
  Sender: FDA-Public Use
  Company Number: US-SA-SAC20230327001188

PATIENT
  Age: 50 Year
  Sex: Female

DRUGS (2)
  1. FLOMAX [Suspect]
     Active Substance: TAMSULOSIN HYDROCHLORIDE
     Indication: Prostate cancer
     Dosage: WEEKS
     Route: 065
  2. VOLMAX [SALBUTAMOL] [Concomitant]
     Indication: Bronchospasm
     Dosage: UNK

REACTIONS (2)
  - Cystinosis [Unknown]
  - Inappropriate schedule of product administration [Unknown]

NARRATIVE: CASE EVENT DATE: 20230220
